FAERS Safety Report 8561642-5 (Version None)
Quarter: 2012Q3

REPORT INFORMATION
  Report Type: 
  Country: None (occurrence: None)
  Receive Date: 20120802
  Receipt Date: 20120723
  Transmission Date: 20120928
  Serious: Yes (Hospitalization, Disabling, Other)
  Sender: FDA-Public Use
  Company Number: US-009507513-1205USA02863

PATIENT

DRUGS (3)
  1. BONIVA [Suspect]
     Indication: OSTEOPOROSIS
     Dosage: UNK
     Dates: start: 20080801
  2. FOSAMAX [Suspect]
     Indication: OSTEOPOROSIS
     Dosage: UNK
     Route: 048
     Dates: start: 20030101
  3. RECLAST [Suspect]
     Indication: OSTEOPOROSIS
     Dosage: UNK

REACTIONS (34)
  - GINGIVAL DISORDER [None]
  - CYST [None]
  - FALL [None]
  - OEDEMA PERIPHERAL [None]
  - TONIC CLONIC MOVEMENTS [None]
  - LOW TURNOVER OSTEOPATHY [None]
  - ABSCESS [None]
  - LOSS OF CONSCIOUSNESS [None]
  - FEMUR FRACTURE [None]
  - DENTAL CARIES [None]
  - DEPRESSION [None]
  - PATELLA FRACTURE [None]
  - ORAL INFECTION [None]
  - ABDOMINAL DISCOMFORT [None]
  - ADVERSE DRUG REACTION [None]
  - ROAD TRAFFIC ACCIDENT [None]
  - JOINT SWELLING [None]
  - VITAMIN D DEFICIENCY [None]
  - OSTEONECROSIS OF JAW [None]
  - ANXIETY [None]
  - OSTEOPOROSIS [None]
  - STRESS FRACTURE [None]
  - GASTROOESOPHAGEAL REFLUX DISEASE [None]
  - OSTEOARTHRITIS [None]
  - SYNOVITIS [None]
  - VISION BLURRED [None]
  - PAIN [None]
  - CALCIUM DEFICIENCY [None]
  - NEUROPATHY PERIPHERAL [None]
  - PNEUMONIA PRIMARY ATYPICAL [None]
  - DRUG INEFFECTIVE [None]
  - SPINAL DISORDER [None]
  - RAYNAUD'S PHENOMENON [None]
  - BONE LOSS [None]
